FAERS Safety Report 24631130 (Version 1)
Quarter: 2024Q4

REPORT INFORMATION
  Report Type: Spontaneous
  Country: US (occurrence: None)
  Receive Date: 20241117
  Receipt Date: 20241117
  Transmission Date: 20250115
  Serious: Yes (Death)
  Sender: Public
  Company Number: None

PATIENT
  Age: 79 Year
  Sex: Female
  Weight: 60 kg

DRUGS (1)
  1. WARFARIN [Suspect]
     Active Substance: WARFARIN
     Indication: Product used for unknown indication
     Dosage: FREQUENCY : DAILY;?
     Route: 048

REACTIONS (8)
  - Fall [None]
  - Subdural haematoma [None]
  - International normalised ratio increased [None]
  - Cerebral mass effect [None]
  - Cerebral infarction [None]
  - Encephalomalacia [None]
  - Brain herniation [None]
  - Cerebral infarction [None]

NARRATIVE: CASE EVENT DATE: 20240928
